FAERS Safety Report 17855969 (Version 1)
Quarter: 2020Q2

REPORT INFORMATION
  Report Type: Spontaneous
  Country: SE (occurrence: SE)
  Receive Date: 20200603
  Receipt Date: 20200603
  Transmission Date: 20200714
  Serious: Yes (Other)
  Sender: FDA-Public Use
  Company Number: SE-MYLANLABS-2020M1053561

PATIENT
  Age: 33 Year
  Sex: Male

DRUGS (1)
  1. METHYLPHENIDATE. [Suspect]
     Active Substance: METHYLPHENIDATE
     Indication: PRODUCT USED FOR UNKNOWN INDICATION
     Dosage: INSATT P?: ^METYLFENIDAT 18 MG^
     Dates: start: 20200211

REACTIONS (5)
  - Erectile dysfunction [Unknown]
  - Nausea [Unknown]
  - Condition aggravated [Unknown]
  - Libido decreased [Unknown]
  - Headache [Unknown]

NARRATIVE: CASE EVENT DATE: 202002
